FAERS Safety Report 21592758 (Version 2)
Quarter: 2022Q4

REPORT INFORMATION
  Report Type: Spontaneous
  Country: JP (occurrence: JP)
  Receive Date: 20221114
  Receipt Date: 20221214
  Transmission Date: 20230113
  Serious: Yes (Hospitalization, Other)
  Sender: FDA-Public Use
  Company Number: JP-GUERBETG_JAPAN-JP-20220186

PATIENT
  Age: 81 Year
  Sex: Male

DRUGS (4)
  1. LIPIODOL [Suspect]
     Active Substance: ETHIODIZED OIL
     Indication: Therapeutic embolisation
     Dosage: LIPIODOL (ETHIODIZED OIL) MIXED WITH N-BUTYL-2-CYANOACRYLATE (NBCA) AT A RATIO OF 1:5. OVERAL 11.6 M
     Route: 042
  2. UNSPECIFIED INGREDIENT [Suspect]
     Active Substance: UNSPECIFIED INGREDIENT
     Indication: Therapeutic embolisation
     Dosage: LIPIODOL (ETHIODIZED OIL) MIXED WITH N-BUTYL-2-CYANOACRYLATE (NBCA) AT A RATIO OF 1:5. OVERAL 11.6 M
     Route: 042
  3. DEXMEDETOMIDINE HYDROCHLORIDE [Concomitant]
     Active Substance: DEXMEDETOMIDINE HYDROCHLORIDE
     Indication: Sedation
  4. LIDOCAINE [Concomitant]
     Active Substance: LIDOCAINE
     Indication: Local anaesthesia

REACTIONS (1)
  - Subcapsular splenic haematoma [Recovered/Resolved]
